FAERS Safety Report 13716177 (Version 1)
Quarter: 2017Q3

REPORT INFORMATION
  Report Type: Report from Study
  Country: None (occurrence: BR)
  Receive Date: 20170705
  Receipt Date: 20170705
  Transmission Date: 20171127
  Serious: Yes (Other)
  Sender: FDA-Public Use
  Company Number: BR-ABBVIE-17K-020-2028262-00

PATIENT
  Age: 43 Year
  Sex: Female
  Weight: 68 kg

DRUGS (1)
  1. HUMIRA [Suspect]
     Active Substance: ADALIMUMAB
     Indication: PSORIASIS
     Route: 058
     Dates: start: 20100110

REACTIONS (4)
  - Tibia fracture [Unknown]
  - Laceration [Recovered/Resolved]
  - Road traffic accident [Recovering/Resolving]
  - Patella fracture [Recovering/Resolving]

NARRATIVE: CASE EVENT DATE: 20170613
